FAERS Safety Report 25568952 (Version 1)
Quarter: 2025Q3

REPORT INFORMATION
  Report Type: Spontaneous
  Country: EU (occurrence: EU)
  Receive Date: 20250716
  Receipt Date: 20250716
  Transmission Date: 20251021
  Serious: Yes (Other)
  Sender: NOVO NORDISK
  Company Number: None

PATIENT
  Sex: Female

DRUGS (1)
  1. WEGOVY [Suspect]
     Active Substance: SEMAGLUTIDE
     Indication: Obesity
     Dosage: 1.7 MG, QW(ONE DOSE PER WEEK)
     Route: 058
     Dates: start: 20241129, end: 20250611

REACTIONS (1)
  - Optic ischaemic neuropathy [Unknown]

NARRATIVE: CASE EVENT DATE: 20250520
